FAERS Safety Report 5177252-6 (Version None)
Quarter: 2006Q4

REPORT INFORMATION
  Report Type: 
  Country: None (occurrence: None)
  Receive Date: 20061218
  Receipt Date: 20061208
  Transmission Date: 20070319
  Serious: Yes (Hospitalization)
  Sender: FDA-Public Use
  Company Number: 2006UW27426

PATIENT
  Sex: Male

DRUGS (3)
  1. SEROQUEL [Suspect]
     Indication: HALLUCINATION, AUDITORY
     Route: 048
     Dates: start: 20061208
  2. SEROQUEL [Suspect]
     Indication: INSOMNIA
     Route: 048
     Dates: start: 20061208
  3. AMBIEN [Interacting]

REACTIONS (4)
  - ACCIDENTAL OVERDOSE [None]
  - HYPOTENSION [None]
  - INCOHERENT [None]
  - SOMNOLENCE [None]
